FAERS Safety Report 9739558 (Version 2)
Quarter: 2013Q4

REPORT INFORMATION
  Report Type: Spontaneous
  Country: JP (occurrence: JP)
  Receive Date: 20131209
  Receipt Date: 20131209
  Transmission Date: 20140711
  Serious: Yes (Hospitalization)
  Sender: FDA-Public Use
  Company Number: JP-EISAI INC-E2090-00022-SPO-JP

PATIENT
  Age: 31 Year
  Sex: Female

DRUGS (3)
  1. EXCEGRAN [Suspect]
     Indication: EPILEPSY
     Route: 048
     Dates: start: 20050318, end: 20050319
  2. ALEVIATIN (PHENYTOIN) [Suspect]
     Indication: EPILEPSY
     Route: 048
     Dates: start: 20050228, end: 20050317
  3. SODIUM VALPROATE [Suspect]
     Indication: PRODUCT USED FOR UNKNOWN INDICATION
     Dosage: UNKNOWN
     Route: 065

REACTIONS (2)
  - Stevens-Johnson syndrome [Unknown]
  - Rash pustular [Unknown]
